FAERS Safety Report 22733877 (Version 4)
Quarter: 2023Q4

REPORT INFORMATION
  Report Type: Report from Study
  Country: US (occurrence: US)
  Receive Date: 20230721
  Receipt Date: 20231212
  Transmission Date: 20240110
  Serious: Yes (Other)
  Sender: FDA-Public Use
  Company Number: US-ACADIA PHARMACEUTICALS INC.-ACA-2023-TRF-002605

PATIENT
  Age: 7 Year
  Sex: Female

DRUGS (13)
  1. DAYBUE [Suspect]
     Active Substance: TROFINETIDE
     Indication: Rett syndrome
     Dosage: 40 MILLILITER, BID
     Route: 048
     Dates: start: 202303
  2. DAYBUE [Suspect]
     Active Substance: TROFINETIDE
     Dosage: 40 MILLILITER, BID
     Route: 048
     Dates: start: 20231002
  3. CLONIDINE [Concomitant]
     Active Substance: CLONIDINE
  4. TOPAMAX [Concomitant]
     Active Substance: TOPIRAMATE
  5. BUSPIRONE [Concomitant]
     Active Substance: BUSPIRONE HYDROCHLORIDE
  6. PRIMIDONE [Concomitant]
     Active Substance: PRIMIDONE
  7. RAMELTEON [Concomitant]
     Active Substance: RAMELTEON
  8. VIMPAT [Concomitant]
     Active Substance: LACOSAMIDE
  9. BACLOFEN [Concomitant]
     Active Substance: BACLOFEN
  10. MELATONIN [Concomitant]
     Active Substance: MELATONIN
  11. DIASTAT [Concomitant]
     Active Substance: DIAZEPAM
  12. IMODIUM [Concomitant]
     Active Substance: LOPERAMIDE HYDROCHLORIDE
  13. IRON [Concomitant]
     Active Substance: IRON

REACTIONS (14)
  - Seizure [Not Recovered/Not Resolved]
  - Refusal of treatment by patient [Not Recovered/Not Resolved]
  - Refusal of treatment by patient [Not Recovered/Not Resolved]
  - Influenza [Not Recovered/Not Resolved]
  - Irritability [Not Recovered/Not Resolved]
  - Hormone level abnormal [Not Recovered/Not Resolved]
  - Blood pressure decreased [Recovered/Resolved]
  - Growth disorder [Not Recovered/Not Resolved]
  - Gastroenteritis viral [Recovered/Resolved]
  - Retching [Recovered/Resolved]
  - Refusal of treatment by patient [Not Recovered/Not Resolved]
  - Diarrhoea [Unknown]
  - Diarrhoea [Not Recovered/Not Resolved]
  - Vomiting [Not Recovered/Not Resolved]

NARRATIVE: CASE EVENT DATE: 20230701
